FAERS Safety Report 8824703 (Version 2)
Quarter: 2012Q4

REPORT INFORMATION
  Report Type: 
  Country: IT (occurrence: IT)
  Receive Date: 20121004
  Receipt Date: 20121012
  Transmission Date: 20130627
  Serious: Yes (Other)
  Sender: FDA-Public Use
  Company Number: IT-SANOFI-AVENTIS-2012SA071806

PATIENT
  Age: 26 Year
  Sex: Female

DRUGS (2)
  1. ZOLPIDEM TARTRATE [Suspect]
     Indication: DRUG USE FOR UNKNOWN INDICATION
     Route: 048
  2. CANNABIS SATIVA [Concomitant]

REACTIONS (4)
  - Victim of sexual abuse [Unknown]
  - Intentional drug misuse [Unknown]
  - Amnesia [Recovered/Resolved]
  - Loss of consciousness [Recovered/Resolved]
